FAERS Safety Report 17025424 (Version 2)
Quarter: 2024Q4

REPORT INFORMATION
  Report Type: Report from Study
  Country: CA (occurrence: CA)
  Receive Date: 20191113
  Receipt Date: 20241121
  Transmission Date: 20250115
  Serious: Yes (Other)
  Sender: BAUSCH AND LOMB
  Company Number: CA-BAUSCH-BL-2019-012161

PATIENT
  Age: 49 Year
  Sex: Female

DRUGS (7)
  1. SILIQ [Suspect]
     Active Substance: BRODALUMAB
     Indication: Psoriasis
     Dosage: 210 MG/ 1.5 ML, WEEKLY
     Route: 058
     Dates: start: 20190417, end: 201905
  2. SILIQ [Suspect]
     Active Substance: BRODALUMAB
     Dosage: 210 MG/ 1.5 ML, Q 2 WEEKS
     Route: 058
     Dates: start: 2019
  3. SILIQ [Suspect]
     Active Substance: BRODALUMAB
     Dosage: 210 MG/ 1.5 ML, WEEKLY
     Route: 058
  4. CYMBALTA [Concomitant]
     Active Substance: DULOXETINE HYDROCHLORIDE
     Indication: Product used for unknown indication
     Route: 065
  5. PANTOPRAZOLE SODIUM [Concomitant]
     Active Substance: PANTOPRAZOLE SODIUM
     Indication: Product used for unknown indication
     Route: 065
  6. NAPROXEN [Concomitant]
     Active Substance: NAPROXEN
     Indication: Product used for unknown indication
     Route: 065
  7. TYLENOL [Concomitant]
     Active Substance: ACETAMINOPHEN
     Indication: Product used for unknown indication
     Route: 065

REACTIONS (6)
  - Psoriatic arthropathy [Not Recovered/Not Resolved]
  - Pneumonia aspiration [Unknown]
  - Cough [Unknown]
  - Myalgia [Not Recovered/Not Resolved]
  - Arthralgia [Recovered/Resolved]
  - Off label use [Unknown]

NARRATIVE: CASE EVENT DATE: 20190101
